FAERS Safety Report 9845947 (Version 2)
Quarter: 2014Q1

REPORT INFORMATION
  Report Type: Spontaneous
  Country: US (occurrence: US)
  Receive Date: 20140127
  Receipt Date: 20140127
  Transmission Date: 20141002
  Serious: Yes (Hospitalization)
  Sender: FDA-Public Use
  Company Number: US-PFIZER INC-2014022148

PATIENT
  Age: 50 Year
  Sex: Male

DRUGS (3)
  1. DOXEPIN HCL [Suspect]
     Dosage: UNK
  2. TRAZODONE [Concomitant]
  3. CYCLOBENZAPRINE [Concomitant]

REACTIONS (6)
  - Overdose [Unknown]
  - Toxicity to various agents [Recovered/Resolved]
  - Convulsion [Recovered/Resolved]
  - Electrocardiogram QRS complex prolonged [Recovered/Resolved]
  - Hypotension [Recovered/Resolved]
  - Acidosis [Recovered/Resolved]
